FAERS Safety Report 23116503 (Version 1)
Quarter: 2023Q4

REPORT INFORMATION
  Report Type: Spontaneous
  Country: US (occurrence: None)
  Receive Date: 20231026
  Receipt Date: 20231026
  Transmission Date: 20240110
  Serious: Yes (Hospitalization)
  Sender: FDA-Public Use
  Company Number: None

PATIENT
  Age: 85 Year
  Sex: Female

DRUGS (1)
  1. LENALIDOMIDE [Suspect]
     Active Substance: LENALIDOMIDE
     Indication: Plasma cell myeloma
     Dosage: FREQUENCY : DAILY;?
     Route: 048
     Dates: start: 20170215

REACTIONS (5)
  - Dysuria [None]
  - Pollakiuria [None]
  - Urinary tract infection [None]
  - Drug ineffective [None]
  - Therapy interrupted [None]

NARRATIVE: CASE EVENT DATE: 20231026
